FAERS Safety Report 22376533 (Version 2)
Quarter: 2023Q2

REPORT INFORMATION
  Report Type: Spontaneous
  Country: US (occurrence: US)
  Receive Date: 20230528
  Receipt Date: 20230615
  Transmission Date: 20230722
  Serious: Yes (Other)
  Sender: FDA-Public Use
  Company Number: US-drreddys-SPO/USA/23/0165385

PATIENT
  Age: 18 Year
  Sex: Female
  Weight: 51.2 kg

DRUGS (6)
  1. ZENATANE [Suspect]
     Active Substance: ISOTRETINOIN
     Indication: Acne
     Route: 048
     Dates: start: 20221014, end: 20221117
  2. ZENATANE [Suspect]
     Active Substance: ISOTRETINOIN
     Dosage: 1XDAY IN THE AM;
     Route: 048
     Dates: start: 20221118, end: 20230123
  3. ZENATANE [Suspect]
     Active Substance: ISOTRETINOIN
     Dosage: 1X/DAY IN THE AM IN 11/18/2022 TO 01/23/2023 CONJUNCTION WITH 30 MG AT QHS (BEDTIME),
     Route: 048
     Dates: start: 20221118, end: 20230123
  4. MYORISAN [Suspect]
     Active Substance: ISOTRETINOIN
     Indication: Acne
     Dosage: 1X/DAY AT BEDTIME
     Route: 048
     Dates: start: 20220916
  5. MYORISAN [Suspect]
     Active Substance: ISOTRETINOIN
     Dates: start: 20221118, end: 20230123
  6. MYORISAN [Suspect]
     Active Substance: ISOTRETINOIN
     Route: 048
     Dates: start: 20230124, end: 20230215

REACTIONS (3)
  - Anxiety [Unknown]
  - Panic attack [Unknown]
  - Depression [Unknown]
